FAERS Safety Report 8206228-7 (Version None)
Quarter: 2012Q1

REPORT INFORMATION
  Report Type: 
  Country: None (occurrence: None)
  Receive Date: 20120313
  Receipt Date: 20120306
  Transmission Date: 20120608
  Serious: Yes (Hospitalization)
  Sender: FDA-Public Use
  Company Number: PHHY2011AU115653

PATIENT
  Sex: Female

DRUGS (11)
  1. ZOLEDRONOC ACID [Suspect]
     Dosage: 5 MG, UNK
     Route: 042
     Dates: start: 20091126
  2. ZOLEDRONOC ACID [Suspect]
     Dosage: 5 MG, UNK
     Route: 042
     Dates: start: 20101104
  3. ASPIRIN [Concomitant]
     Dosage: UNK UKN, UNK
  4. CABERGOLINE [Concomitant]
     Dosage: UNK UKN, UNK
  5. DITROPAN [Concomitant]
     Dosage: UNK UKN, UNK
  6. ACETAMINOPHEN AND CODEINE PHOSPHATE [Concomitant]
     Dosage: UNK UKN, UNK
  7. RABEPRAZOLE SODIUM [Concomitant]
     Dosage: UNK UKN, UNK
  8. ENDEP [Concomitant]
     Dosage: UNK UKN, UNK
  9. HYDROXOCOBALAMIN [Concomitant]
     Dosage: UNK UKN, UNK
  10. MOVIPREP [Concomitant]
     Dosage: UNK UKN, UNK
  11. COVERSYL PLUS                      /01421201/ [Concomitant]
     Dosage: UNK UKN, UNK

REACTIONS (3)
  - GASTROINTESTINAL DISORDER [None]
  - OSTEOPOROTIC FRACTURE [None]
  - MALAISE [None]
